FAERS Safety Report 4940094-8 (Version None)
Quarter: 2006Q1

REPORT INFORMATION
  Report Type: 
  Country: None (occurrence: None)
  Receive Date: 20060310
  Receipt Date: 20060206
  Transmission Date: 20060701
  Serious: No
  Sender: FDA-Public Use
  Company Number: JP-BRISTOL-MYERS SQUIBB COMPANY-13276571

PATIENT
  Age: 64 Year
  Sex: Male

DRUGS (6)
  1. MEVALOTIN [Suspect]
     Indication: HYPERLIPIDAEMIA
     Route: 048
     Dates: start: 20051214, end: 20060105
  2. OLMETEC [Concomitant]
     Indication: HYPERTENSION
     Route: 048
     Dates: start: 20051214
  3. CALBLOCK [Concomitant]
     Indication: HYPERTENSION
     Route: 048
     Dates: start: 20051214
  4. KELNAC [Concomitant]
     Indication: GASTRITIS
     Route: 048
     Dates: start: 20051214
  5. PLETAL [Concomitant]
     Indication: CEREBRAL INFARCTION
     Route: 048
     Dates: start: 20051214
  6. INSULIN HUMAN [Concomitant]
     Indication: DIABETES MELLITUS
     Route: 058
     Dates: start: 20051214

REACTIONS (3)
  - ASPARTATE AMINOTRANSFERASE INCREASED [None]
  - BLOOD CREATINE PHOSPHOKINASE INCREASED [None]
  - PYREXIA [None]
